FAERS Safety Report 9620692 (Version 1)
Quarter: 2013Q4

REPORT INFORMATION
  Report Type: Spontaneous
  Country: US (occurrence: US)
  Receive Date: 20131015
  Receipt Date: 20131015
  Transmission Date: 20140711
  Serious: No
  Sender: FDA-Public Use
  Company Number: US-BIOGENIDEC-2013BI051816

PATIENT
  Age: 26 Year
  Sex: Female

DRUGS (1)
  1. AVONEX [Suspect]
     Indication: MULTIPLE SCLEROSIS
     Route: 030
     Dates: start: 20120923

REACTIONS (8)
  - Stress [Recovered/Resolved]
  - Coordination abnormal [Recovered/Resolved]
  - Clumsiness [Recovered/Resolved]
  - Multiple sclerosis [Recovered/Resolved]
  - Drug dose omission [Unknown]
  - Multiple sclerosis relapse [Recovered/Resolved]
  - Anxiety [Recovered/Resolved]
  - Fatigue [Recovered/Resolved]
